FAERS Safety Report 22047406 (Version 2)
Quarter: 2025Q1

REPORT INFORMATION
  Report Type: Spontaneous
  Country: US (occurrence: US)
  Receive Date: 20230301
  Receipt Date: 20250212
  Transmission Date: 20250409
  Serious: Yes (Death, Other)
  Sender: BRISTOL-MYERS SQUIBB COMPANY
  Company Number: US-BRISTOL-MYERS SQUIBB COMPANY-2023-029829

PATIENT
  Age: 79 Year
  Sex: Male

DRUGS (1)
  1. REVLIMID [Suspect]
     Active Substance: LENALIDOMIDE
     Indication: Plasma cell myeloma
     Dosage: DOSE: 25 MG; FREQ: 21MG X 28 DAYS. 7 DAYS OFF
     Route: 048
     Dates: start: 20220806

REACTIONS (1)
  - Death [Fatal]
